FAERS Safety Report 9522344 (Version 1)
Quarter: 2013Q1

REPORT INFORMATION
  Report Type: Spontaneous
  Country: US (occurrence: None)
  Receive Date: 20130305
  Receipt Date: 20130305
  Transmission Date: 20140127
  Serious: Yes (Other)
  Sender: FDA-Public Use
  Company Number: 163-21880-12022688

PATIENT
  Age: 65 Year
  Sex: Female
  Weight: 73.48 kg

DRUGS (9)
  1. REVLIMID [Suspect]
     Indication: PLASMA CELL MYELOMA
     Route: 048
     Dates: start: 20120219, end: 20120223
  2. CYMBALTA (DULOXETINE HYDROCLORIDE) (CAPSULES) [Concomitant]
  3. FOLIC ACID (FOLIC ACID) (TABLETS) [Concomitant]
  4. PREVACID (LANSOPRAZOLE) (CAPSULES) [Concomitant]
  5. PREDNISONE (PREDNISONE) (TABLETS) [Concomitant]
  6. ENBREL (INJECTION) [Concomitant]
  7. METHOTREXATE (METHOTREXATE) (TABLETS) [Concomitant]
  8. ZOMETA (ZOLEDRONIC ACID) (INJECTION) [Concomitant]
  9. DEXAMETHASONE (DEXAMETHASONE) (TABLETS) [Concomitant]

REACTIONS (3)
  - Loss of consciousness [None]
  - Fall [None]
  - Pain [None]
